FAERS Safety Report 20731210 (Version 1)
Quarter: 2022Q2

REPORT INFORMATION
  Report Type: Spontaneous
  Country: JP (occurrence: JP)
  Receive Date: 20220420
  Receipt Date: 20220420
  Transmission Date: 20220721
  Serious: Yes (Other)
  Sender: FDA-Public Use
  Company Number: JP-ABBVIE-22K-087-4364908-00

PATIENT

DRUGS (2)
  1. CARBIDOPA\LEVODOPA [Suspect]
     Active Substance: CARBIDOPA\LEVODOPA
     Indication: Parkinson^s disease
     Route: 050
  2. CARBIDOPA\LEVODOPA [Suspect]
     Active Substance: CARBIDOPA\LEVODOPA

REACTIONS (11)
  - Embedded device [Unknown]
  - Stoma site hypergranulation [Unknown]
  - Stoma site reaction [Unknown]
  - Cellulitis [Recovering/Resolving]
  - Cellulitis [Unknown]
  - Abdominal abscess [Recovering/Resolving]
  - Subcutaneous abscess [Unknown]
  - Stoma site infection [Unknown]
  - Stoma site hypergranulation [Unknown]
  - Stoma site discharge [Unknown]
  - Stoma site dermatitis [Unknown]
